FAERS Safety Report 4895179-1 (Version None)
Quarter: 2006Q1

REPORT INFORMATION
  Report Type: 
  Country: None (occurrence: None)
  Receive Date: 20060125
  Receipt Date: 20031118
  Transmission Date: 20060701
  Serious: Yes (Hospitalization)
  Sender: FDA-Public Use
  Company Number: FR_031103176

PATIENT
  Age: 3 Year
  Sex: Male

DRUGS (6)
  1. VANCOMYCIN [Suspect]
     Dates: start: 20030602, end: 20030617
  2. BACTRIM [Concomitant]
  3. TIENAM [Concomitant]
  4. FLUCONAZOLE [Concomitant]
  5. OMEPRAZOLE [Concomitant]
  6. AMIKIN [Concomitant]

REACTIONS (5)
  - AREFLEXIA [None]
  - ENCEPHALOPATHY [None]
  - MOTOR DYSFUNCTION [None]
  - MYOCLONUS [None]
  - TREMOR [None]
